FAERS Safety Report 22062647 (Version 3)
Quarter: 2023Q1

REPORT INFORMATION
  Report Type: Spontaneous
  Country: US (occurrence: US)
  Receive Date: 20230306
  Receipt Date: 20230330
  Transmission Date: 20230418
  Serious: Yes (Other)
  Sender: FDA-Public Use
  Company Number: US-AMGEN-USASP2023035773

PATIENT
  Age: 72 Year
  Sex: Female
  Weight: 102.95 kg

DRUGS (17)
  1. PROLIA [Suspect]
     Active Substance: DENOSUMAB
     Indication: Osteoporosis postmenopausal
     Dosage: 60 MILLIGRAM, Q6MO
     Route: 058
     Dates: start: 20200306
  2. PITAVASTATIN CALCIUM [Concomitant]
     Active Substance: PITAVASTATIN CALCIUM
     Dosage: 4 MILLIGRAM, QD
     Route: 048
  3. LOSARTAN POTASSIUM [Concomitant]
     Active Substance: LOSARTAN POTASSIUM
     Dosage: 50 MILLIGRAM, QD
     Route: 048
  4. VERAPAMIL [Concomitant]
     Active Substance: VERAPAMIL HYDROCHLORIDE
     Dosage: 120 MILLIGRAM, QD
     Route: 048
  5. BRIMONIDINE TARTRATE [Concomitant]
     Active Substance: BRIMONIDINE TARTRATE
  6. OMEPRAZOLE [Concomitant]
     Active Substance: OMEPRAZOLE
     Dosage: 40 MILLIGRAM, QD
     Route: 048
  7. TRAVATAN [Concomitant]
     Active Substance: TRAVOPROST
  8. VALACYCLOVIR [Concomitant]
     Active Substance: VALACYCLOVIR HYDROCHLORIDE
     Dosage: 500 MILLIGRAM
  9. CLONAZEPAM [Concomitant]
     Active Substance: CLONAZEPAM
     Dosage: 1 MILLIGRAM, QD
     Route: 048
  10. STIOLTO RESPIMAT [Concomitant]
     Active Substance: OLODATEROL HYDROCHLORIDE\TIOTROPIUM BROMIDE MONOHYDRATE
  11. PAXIL [Concomitant]
     Active Substance: PAROXETINE HYDROCHLORIDE
     Dosage: 30 MILLIGRAM, QD
     Route: 048
  12. NALTREXONE [Concomitant]
     Active Substance: NALTREXONE
     Dosage: 50 MILLIGRAM, QD
     Route: 048
  13. VITAMIN D [Concomitant]
     Active Substance: VITAMIN D NOS
     Dosage: UNK UNK, QD
     Route: 048
  14. XOLAIR [Concomitant]
     Active Substance: OMALIZUMAB
     Dosage: 300 MILLIGRAM
  15. VIVITROL [Concomitant]
     Active Substance: NALTREXONE
     Dosage: 380 MILLIGRAM, Q4WK
     Route: 030
  16. LIVALO [Concomitant]
     Active Substance: PITAVASTATIN CALCIUM
     Dosage: 4 MILLIGRAM, QD
     Route: 048
  17. TALTZ [Concomitant]
     Active Substance: IXEKIZUMAB

REACTIONS (9)
  - Barrett^s oesophagus [Unknown]
  - Compression fracture [Unknown]
  - Inappropriate schedule of product administration [Unknown]
  - Endocrine disorder [Unknown]
  - Weight decreased [Unknown]
  - Foot fracture [Unknown]
  - Total cholesterol/HDL ratio increased [Unknown]
  - Mean platelet volume decreased [Unknown]
  - Protein total decreased [Unknown]

NARRATIVE: CASE EVENT DATE: 20210917
